FAERS Safety Report 20340722 (Version 2)
Quarter: 2022Q1

REPORT INFORMATION
  Report Type: Spontaneous
  Country: JP (occurrence: JP)
  Receive Date: 20220117
  Receipt Date: 20220118
  Transmission Date: 20220424
  Serious: Yes (Other)
  Sender: FDA-Public Use
  Company Number: JP-PFIZER INC-202200022210

PATIENT

DRUGS (1)
  1. IBRANCE [Suspect]
     Active Substance: PALBOCICLIB
     Dosage: 100 MG

REACTIONS (5)
  - Diabetes mellitus [Unknown]
  - Neutrophil count decreased [Unknown]
  - Sinusitis [Unknown]
  - Dental caries [Unknown]
  - Periodontal disease [Unknown]
